FAERS Safety Report 8380186-7 (Version None)
Quarter: 2012Q2

REPORT INFORMATION
  Report Type: 
  Country: None (occurrence: None)
  Receive Date: 20120523
  Receipt Date: 20120518
  Transmission Date: 20120825
  Serious: Yes (Hospitalization)
  Sender: FDA-Public Use
  Company Number: ES-PFIZER INC-2012122203

PATIENT
  Age: 89 Year
  Sex: Male

DRUGS (7)
  1. ALDACTONE [Suspect]
     Indication: CARDIAC FAILURE
     Dosage: UNK
     Route: 048
     Dates: start: 20110805
  2. DIGOXIN [Concomitant]
     Indication: ATRIAL FIBRILLATION
     Dosage: UNK
     Route: 048
     Dates: start: 20070101
  3. FUROSEMIDE [Suspect]
     Dosage: UNK
     Route: 048
     Dates: start: 20090101
  4. BUDESONIDE ^ALDO UNION^ [Concomitant]
     Dosage: UNK
     Route: 055
     Dates: start: 20110824
  5. OMEPRAZOL ^STADA^ [Concomitant]
     Dosage: UNK
     Route: 048
     Dates: start: 20110824
  6. ATORVASTATIN [Concomitant]
     Dosage: UNK
     Route: 048
     Dates: start: 20070101
  7. FERROUS SULFATE TAB [Concomitant]
     Indication: ANAEMIA
     Dosage: UNK
     Route: 048
     Dates: start: 20110824

REACTIONS (1)
  - METABOLIC ALKALOSIS [None]
